FAERS Safety Report 8194034-1 (Version None)
Quarter: 2012Q1

REPORT INFORMATION
  Report Type: 
  Country: None (occurrence: None)
  Receive Date: 20120308
  Receipt Date: 20120301
  Transmission Date: 20120608
  Serious: Yes (Hospitalization)
  Sender: FDA-Public Use
  Company Number: JP-MERCK-1107USA01178

PATIENT
  Age: 60 Year
  Sex: Male

DRUGS (3)
  1. COSOPT [Suspect]
     Indication: OPEN ANGLE GLAUCOMA
     Dosage: ONE BOTH EYE EACH EYE DROP/TIME
     Route: 047
     Dates: start: 20100807, end: 20110628
  2. COSOPT [Suspect]
     Route: 047
     Dates: start: 20110819
  3. XALATAN [Concomitant]
     Indication: OPEN ANGLE GLAUCOMA
     Dosage: ONE BOTH EYE EACH EYE DROP/TIME
     Route: 047
     Dates: start: 20100807

REACTIONS (1)
  - ADVERSE EVENT [None]
